FAERS Safety Report 15557600 (Version 1)
Quarter: 2018Q4

REPORT INFORMATION
  Report Type: Spontaneous
  Country: FR (occurrence: FR)
  Receive Date: 20181027
  Receipt Date: 20181027
  Transmission Date: 20190205
  Serious: Yes (Hospitalization, Other)
  Sender: FDA-Public Use
  Company Number: FR-AXELLIA-002003

PATIENT
  Age: 80 Year
  Sex: Male

DRUGS (6)
  1. WARFARIN [Interacting]
     Active Substance: WARFARIN
     Indication: CARDIAC VALVE PROSTHESIS USER
     Dosage: 0-0-3?STRENGTH: 2 MG
     Route: 048
     Dates: start: 201701
  2. TAHOR [Concomitant]
     Active Substance: ATORVASTATIN CALCIUM
     Indication: DYSLIPIDAEMIA
     Dosage: 1-0-0
     Route: 048
     Dates: start: 201302
  3. VANCOMYCIN [Suspect]
     Active Substance: VANCOMYCIN
     Indication: LUNG DISORDER
     Dosage: 1 FL-1-1
     Route: 042
     Dates: start: 20180213, end: 20180228
  4. FORTUM [Interacting]
     Active Substance: CEFTAZIDIME
     Indication: LUNG DISORDER
     Dosage: 1 FL-1-1
     Route: 042
     Dates: start: 20180213, end: 20180228
  5. KARDEGIC [Interacting]
     Active Substance: ASPIRIN DL-LYSINE
     Indication: CARDIAC VALVE PROSTHESIS USER
     Dosage: 1-0-0
     Route: 048
     Dates: start: 2012
  6. ALLOPURINOL. [Concomitant]
     Active Substance: ALLOPURINOL
     Indication: HYPERURICAEMIA
     Dosage: 1-0-0
     Route: 048
     Dates: start: 201302

REACTIONS (3)
  - Haemorrhagic anaemia [Recovered/Resolved]
  - Drug interaction [Unknown]
  - Rectal haemorrhage [Recovered/Resolved]

NARRATIVE: CASE EVENT DATE: 20180217
